FAERS Safety Report 4989473-3 (Version None)
Quarter: 2006Q2

REPORT INFORMATION
  Report Type: 
  Country: None (occurrence: None)
  Receive Date: 20060502
  Receipt Date: 20050112
  Transmission Date: 20061013
  Serious: Yes (Hospitalization)
  Sender: FDA-Public Use
  Company Number: US-MERCK-0501USA01200

PATIENT
  Age: 49 Year
  Sex: Male
  Weight: 96 kg

DRUGS (8)
  1. VIOXX [Suspect]
     Indication: OSTEOARTHRITIS
     Route: 048
     Dates: start: 20010627
  2. VIOXX [Suspect]
     Route: 048
     Dates: start: 20010110, end: 20010627
  3. ACCUPRIL [Concomitant]
     Route: 048
  4. PROTONIX [Concomitant]
     Route: 048
  5. METOPROLOL [Concomitant]
     Route: 048
  6. LIPITOR [Concomitant]
     Route: 048
  7. ASPIRIN [Concomitant]
     Route: 048
  8. AMBIEN [Concomitant]
     Indication: INSOMNIA
     Route: 065

REACTIONS (17)
  - ANGINA UNSTABLE [None]
  - BLOOD CHOLESTEROL INCREASED [None]
  - BREAST PAIN [None]
  - CHEST DISCOMFORT [None]
  - CORONARY ARTERY STENOSIS [None]
  - COUGH [None]
  - DYSPEPSIA [None]
  - FAECES DISCOLOURED [None]
  - GASTROOESOPHAGEAL REFLUX DISEASE [None]
  - HEADACHE [None]
  - HYPOAESTHESIA [None]
  - INJURY [None]
  - JOINT STIFFNESS [None]
  - MYALGIA [None]
  - MYOCARDIAL INFARCTION [None]
  - PAIN [None]
  - SHOULDER PAIN [None]
